FAERS Safety Report 9894082 (Version 4)
Quarter: 2014Q1

REPORT INFORMATION
  Report Type: Spontaneous
  Country: US (occurrence: US)
  Receive Date: 20140213
  Receipt Date: 20140327
  Transmission Date: 20141002
  Serious: Yes (Disabling, Other)
  Sender: FDA-Public Use
  Company Number: CHPA2014US002410

PATIENT
  Age: 72 Year
  Sex: Female

DRUGS (1)
  1. VOLTAREN GEL [Suspect]
     Indication: ARTHRITIS
     Dosage: A LITTLE ON MY FINGER, BID
     Route: 061

REACTIONS (6)
  - Disability [Recovering/Resolving]
  - Fracture [Recovered/Resolved]
  - Osteomyelitis [Recovered/Resolved]
  - Blister [Recovered/Resolved]
  - Wrong technique in drug usage process [Unknown]
  - Drug administered at inappropriate site [Unknown]
